FAERS Safety Report 4429421-8 (Version None)
Quarter: 2004Q3

REPORT INFORMATION
  Report Type: 
  Country: None (occurrence: None)
  Receive Date: 20040816
  Receipt Date: 20040803
  Transmission Date: 20050211
  Serious: Yes (Death, Other)
  Sender: FDA-Public Use
  Company Number: 2004052380

PATIENT
  Age: 74 Year
  Sex: Female

DRUGS (8)
  1. PENICILLIN G PROCAINE [Suspect]
     Indication: PYREXIA
     Dosage: 4.8 GRAM (4 IN 1 D), INTRAVENOUS
     Route: 042
  2. METFORMIN HCL [Concomitant]
  3. ATORVASTATIN CALCIUM [Concomitant]
  4. PERINDOPRIL (PERINDOPRIL) [Concomitant]
  5. ASPIRIN [Concomitant]
  6. CEFAZOLIN [Concomitant]
  7. GENTAMICIN [Concomitant]
  8. METRONIDAZOLE [Concomitant]

REACTIONS (11)
  - ANAEMIA [None]
  - CARDIO-RESPIRATORY ARREST [None]
  - DISSEMINATED INTRAVASCULAR COAGULATION [None]
  - HAEMATOMA [None]
  - HAEMOLYSIS [None]
  - HYPOXIA [None]
  - IMMUNE SYSTEM DISORDER [None]
  - LUNG INFILTRATION [None]
  - MULTI-ORGAN FAILURE [None]
  - PNEUMONIA [None]
  - RETICULOCYTOSIS [None]
